FAERS Safety Report 6912796-5 (Version None)
Quarter: 2010Q3

REPORT INFORMATION
  Report Type: 
  Country: None (occurrence: None)
  Receive Date: 20100806
  Receipt Date: 20081223
  Transmission Date: 20110219
  Serious: Yes (Other)
  Sender: FDA-Public Use
  Company Number: US-PFIZER INC-2008089334

PATIENT
  Sex: Female
  Weight: 56.236 kg

DRUGS (8)
  1. VFEND [Suspect]
     Indication: PULMONARY FIBROSIS
     Dosage: 400 MG, 2X/DAY
     Route: 048
     Dates: start: 20081018, end: 20081019
  2. VFEND [Suspect]
     Indication: ASPERGILLOSIS
  3. CORTICOSTEROIDS [Concomitant]
  4. GLUCOSAMINE [Concomitant]
  5. CHONDROITIN [Concomitant]
  6. ASCORBIC ACID [Concomitant]
  7. VITAMIN D [Concomitant]
  8. VITAMIN E [Concomitant]

REACTIONS (10)
  - ANXIETY [None]
  - BLINDNESS TRANSIENT [None]
  - CHROMATOPSIA [None]
  - CONFUSIONAL STATE [None]
  - DYSPNOEA [None]
  - FALL [None]
  - HALLUCINATION [None]
  - HYPERTENSION [None]
  - IMPAIRED DRIVING ABILITY [None]
  - VISION BLURRED [None]
